FAERS Safety Report 8516599-X (Version None)
Quarter: 2012Q3

REPORT INFORMATION
  Report Type: 
  Country: None (occurrence: None)
  Receive Date: 20120712
  Receipt Date: 20120712
  Transmission Date: 20120928
  Serious: Yes (Hospitalization)
  Sender: FDA-Public Use
  Company Number: None

PATIENT
  Sex: Female

DRUGS (2)
  1. CEFPROZIL [Suspect]
     Indication: SINUSITIS
     Dosage: 500 MG TWICE A DAY PO
     Route: 048
     Dates: start: 20120517, end: 20120523
  2. STEROIDS [Concomitant]

REACTIONS (2)
  - URTICARIA [None]
  - THROAT TIGHTNESS [None]
